FAERS Safety Report 23549225 (Version 2)
Quarter: 2024Q1

REPORT INFORMATION
  Report Type: Spontaneous
  Country: RU (occurrence: RU)
  Receive Date: 20240221
  Receipt Date: 20240307
  Transmission Date: 20240409
  Serious: Yes (Death, Other)
  Sender: FDA-Public Use
  Company Number: RU-SA-SAC20240220001204

PATIENT
  Age: 4 Year
  Sex: Female

DRUGS (11)
  1. MYOZYME [Suspect]
     Active Substance: ALGLUCOSIDASE ALFA
     Indication: Glycogen storage disease type II
     Dosage: 20 MG/KG, QOW
     Route: 065
     Dates: start: 20201223
  2. MYOZYME [Suspect]
     Active Substance: ALGLUCOSIDASE ALFA
     Dosage: 20 MG/KG, QW
     Route: 065
     Dates: start: 20230728
  3. HEPARIN [BENZOCAINE;BENZYL NICOTINATE;HEPARIN SODIUM] [Concomitant]
     Dosage: 330 IU/KG, QD
     Route: 042
  4. AMBROXOL [Concomitant]
     Active Substance: AMBROXOL
     Dosage: UNK
     Route: 055
  5. SPIRONOLACTONE [Concomitant]
     Active Substance: SPIRONOLACTONE
     Dosage: 12.5 MG, QD
  6. BISOPROLOL [Concomitant]
     Active Substance: BISOPROLOL\BISOPROLOL FUMARATE
     Dosage: 0.625 UNK, BID
  7. ASPARCAM [Concomitant]
     Dosage: UNK
  8. CEFTRIAXONE [Concomitant]
     Active Substance: CEFTRIAXONE\CEFTRIAXONE SODIUM
     Dosage: 80 MG/KG, QD
     Dates: start: 20230602
  9. AMPICILLIN SODIUM\SULBACTAM SODIUM [Concomitant]
     Active Substance: AMPICILLIN SODIUM\SULBACTAM SODIUM
     Dosage: 100 MG/KG
     Dates: start: 20230704
  10. MEROPENEM [Concomitant]
     Active Substance: MEROPENEM
     Dosage: 60 MG/KG, QD
     Dates: start: 20230718
  11. FLUCONAZOLE [Concomitant]
     Active Substance: FLUCONAZOLE
     Dosage: 10 MG/KG, QD

REACTIONS (10)
  - Cardiac arrest [Fatal]
  - Pneumonia [Unknown]
  - Dyspnoea [Unknown]
  - Body temperature increased [Unknown]
  - Oxygen saturation decreased [Unknown]
  - Cough [Unknown]
  - Bradycardia [Unknown]
  - Bradyarrhythmia [Unknown]
  - Heart sounds abnormal [Unknown]
  - Inappropriate schedule of product administration [Unknown]

NARRATIVE: CASE EVENT DATE: 20210307
